FAERS Safety Report 15109894 (Version 3)
Quarter: 2022Q2

REPORT INFORMATION
  Report Type: Spontaneous
  Country: US (occurrence: US)
  Receive Date: 20180705
  Receipt Date: 20220405
  Transmission Date: 20220721
  Serious: Yes (Hospitalization)
  Sender: FDA-Public Use
  Company Number: US-BAYER-2018-121186

PATIENT
  Age: 68 Year
  Sex: Male
  Weight: 110.02 kg

DRUGS (14)
  1. ASPIRIN [Interacting]
     Active Substance: ASPIRIN
     Indication: Antiplatelet therapy
     Dosage: 75 MG, QD
     Route: 048
     Dates: end: 201805
  2. ASPIRIN [Interacting]
     Active Substance: ASPIRIN
     Indication: Antiplatelet therapy
     Dosage: UNK
     Route: 048
     Dates: start: 20180530
  3. TICAGRELOR [Interacting]
     Active Substance: TICAGRELOR
     Indication: Antiplatelet therapy
     Dosage: 90 MG, QD
     Route: 048
     Dates: end: 201805
  4. TICAGRELOR [Interacting]
     Active Substance: TICAGRELOR
     Indication: Antiplatelet therapy
     Dosage: UNK
     Route: 048
     Dates: start: 20180530
  5. ALLOPURINOL [Concomitant]
     Active Substance: ALLOPURINOL
     Indication: Gout
     Dosage: UNK
  6. AMLODIPINE [Concomitant]
     Active Substance: AMLODIPINE BESYLATE
     Indication: Hypertension
     Dosage: UNK
  7. LANTUS [Concomitant]
     Active Substance: INSULIN GLARGINE
     Indication: Diabetes mellitus
  8. EXENATIDE [Concomitant]
     Active Substance: EXENATIDE
     Indication: Diabetes mellitus
  9. DOXAZOSIN MESYLATE [Concomitant]
     Active Substance: DOXAZOSIN MESYLATE
     Indication: Hypertension
  10. CANDESARTAN [Concomitant]
     Active Substance: CANDESARTAN
     Indication: Hypertension
  11. ATORVASTATIN [Concomitant]
     Active Substance: ATORVASTATIN
     Indication: Hypercholesterolaemia
  12. METFORMIN [Concomitant]
     Active Substance: METFORMIN HYDROCHLORIDE
     Indication: Diabetes mellitus
  13. NEBIVOLOL [Concomitant]
     Active Substance: NEBIVOLOL
     Indication: Hypertension
  14. OMEPRAZOLE [Concomitant]
     Active Substance: OMEPRAZOLE
     Indication: Gastrooesophageal reflux disease

REACTIONS (4)
  - Rectal haemorrhage [Recovering/Resolving]
  - Helicobacter infection [Recovered/Resolved]
  - Diverticulum [Recovered/Resolved]
  - Labelled drug-drug interaction medication error [None]

NARRATIVE: CASE EVENT DATE: 20180528
